FAERS Safety Report 10710475 (Version 1)
Quarter: 2015Q1

REPORT INFORMATION
  Report Type: Spontaneous
  Country: US (occurrence: US)
  Receive Date: 20150114
  Receipt Date: 20150114
  Transmission Date: 20150721
  Serious: No
  Sender: FDA-Public Use
  Company Number: US-ELI_LILLY_AND_COMPANY-US201501001263

PATIENT
  Sex: Male

DRUGS (4)
  1. HUMALOG [Suspect]
     Active Substance: INSULIN LISPRO
     Indication: DIABETES MELLITUS
     Dosage: UNK, PRN
     Route: 065
  2. SIMVASTATIN. [Concomitant]
     Active Substance: SIMVASTATIN
     Route: 065
  3. LISINOPRIL. [Concomitant]
     Active Substance: LISINOPRIL
     Route: 065
  4. LANTUS [Concomitant]
     Active Substance: INSULIN GLARGINE
     Route: 065

REACTIONS (2)
  - Drug ineffective [Recovered/Resolved]
  - Blood glucose abnormal [Recovered/Resolved]

NARRATIVE: CASE EVENT DATE: 2014
